FAERS Safety Report 7967430-2 (Version None)
Quarter: 2011Q4

REPORT INFORMATION
  Report Type: 
  Country: None (occurrence: None)
  Receive Date: 20111207
  Receipt Date: 20111122
  Transmission Date: 20120403
  Serious: Yes (Other)
  Sender: FDA-Public Use
  Company Number: 2011SGN00272

PATIENT
  Age: 62 Year
  Sex: Female
  Weight: 69.8 kg

DRUGS (4)
  1. DOXORUBICIN HCL [Suspect]
     Dosage: 50 MG/M2, Q21D, INTRAVENOUS
     Route: 042
     Dates: start: 20111021, end: 20111021
  2. CYCLOPHOSPHAMIDE [Suspect]
     Dosage: 750 MG/M2, Q21D, INTRAVENOUS
     Route: 042
     Dates: start: 20111021, end: 20111021
  3. BRENTUXIMAB VEDOTIN (BRENTUXIMAB VEDOTIN) INJECTION [Suspect]
     Indication: ANAPLASTIC LARGE CELL LYMPHOMA T- AND NULL-CELL TYPES
     Dosage: 1.8 MG/KG, Q21D, INTRAVENOUS
     Route: 042
     Dates: start: 20111021, end: 20111021
  4. PREDNISONE TAB [Suspect]
     Dosage: 100 MG, QCYCLE, ORAL
     Route: 048
     Dates: start: 20111020, end: 20111025

REACTIONS (3)
  - NEUTROPENIC COLITIS [None]
  - SEPSIS [None]
  - HYPOTENSION [None]
